FAERS Safety Report 6908499-3 (Version None)
Quarter: 2010Q3

REPORT INFORMATION
  Report Type: 
  Country: None (occurrence: None)
  Receive Date: 20100805
  Receipt Date: 20100727
  Transmission Date: 20110219
  Serious: Yes (Other)
  Sender: FDA-Public Use
  Company Number: US-PFIZER INC-2010086242

PATIENT
  Sex: Female
  Weight: 71.655 kg

DRUGS (8)
  1. TOVIAZ [Suspect]
     Indication: HYPERTONIC BLADDER
     Dosage: 4 MG, 1X/DAY
     Route: 048
     Dates: start: 20100621, end: 20100627
  2. LIPITOR [Suspect]
     Indication: BLOOD CHOLESTEROL INCREASED
     Dosage: UNK
     Route: 048
  3. NAPROSYN [Concomitant]
     Indication: ARTHRITIS
     Dosage: 500 MG, 2X/DAY
     Route: 048
     Dates: start: 20070101
  4. FISH OIL [Concomitant]
     Dosage: UNK
  5. MULTI-VITAMINS [Concomitant]
     Dosage: UNK
  6. CALCIUM [Concomitant]
     Dosage: UNK
  7. GLUCOSAMINE [Concomitant]
     Dosage: UNK
  8. FERROUS SULFATE [Concomitant]
     Dosage: 325 MG, UNK

REACTIONS (1)
  - GAIT DISTURBANCE [None]
